FAERS Safety Report 12298790 (Version 1)
Quarter: 2016Q2

REPORT INFORMATION
  Report Type: Spontaneous
  Country: US (occurrence: US)
  Receive Date: 20160425
  Receipt Date: 20160425
  Transmission Date: 20160815
  Serious: Yes (Hospitalization)
  Sender: FDA-Public Use
  Company Number: US-BEH-2016061430

PATIENT
  Age: 60 Year
  Sex: Female
  Weight: 100 kg

DRUGS (21)
  1. HIZENTRA [Suspect]
     Active Substance: HUMAN IMMUNOGLOBULIN G
     Indication: IMMUNODEFICIENCY COMMON VARIABLE
     Route: 058
     Dates: start: 20160328
  2. LEVOTHYROXINE. [Concomitant]
     Active Substance: LEVOTHYROXINE
  3. PERCOCET [Concomitant]
     Active Substance: ACETAMINOPHEN\OXYCODONE HYDROCHLORIDE
  4. PREDNISONE. [Concomitant]
     Active Substance: PREDNISONE
  5. SYMBICORT [Concomitant]
     Active Substance: BUDESONIDE\FORMOTEROL FUMARATE DIHYDRATE
  6. LEVEMIR [Concomitant]
     Active Substance: INSULIN DETEMIR
  7. VENTOLIN [Concomitant]
     Active Substance: ALBUTEROL SULFATE
  8. BISOPROLOL [Concomitant]
     Active Substance: BISOPROLOL
  9. EPIPEN [Concomitant]
     Active Substance: EPINEPHRINE
  10. EFFEXOR [Concomitant]
     Active Substance: VENLAFAXINE HYDROCHLORIDE
  11. NOVOLOG [Concomitant]
     Active Substance: INSULIN ASPART
  12. VITAMIN D [Concomitant]
     Active Substance: CHOLECALCIFEROL
  13. CALCIUM [Concomitant]
     Active Substance: CALCIUM
  14. DIPHENHYDRAMINE. [Concomitant]
     Active Substance: DIPHENHYDRAMINE
  15. BUMETANIDE. [Concomitant]
     Active Substance: BUMETANIDE
  16. ACETAMINOPHEN. [Concomitant]
     Active Substance: ACETAMINOPHEN
  17. LIDOCAINE. [Concomitant]
     Active Substance: LIDOCAINE
  18. SINGULAIR [Concomitant]
     Active Substance: MONTELUKAST SODIUM
  19. CALCITROL [Concomitant]
     Active Substance: CALCITRIOL
  20. LISINOPRIL. [Concomitant]
     Active Substance: LISINOPRIL
  21. XANAX [Concomitant]
     Active Substance: ALPRAZOLAM

REACTIONS (2)
  - Dyspnoea [Unknown]
  - Flank pain [Unknown]

NARRATIVE: CASE EVENT DATE: 201603
